FAERS Safety Report 17282644 (Version 1)
Quarter: 2020Q1

REPORT INFORMATION
  Report Type: Spontaneous
  Country: US (occurrence: US)
  Receive Date: 20191230
  Receipt Date: 20191230
  Transmission Date: 20200409
  Serious: Yes (Hospitalization)
  Sender: FDA-Public Use
  Company Number: None

PATIENT
  Sex: Female

DRUGS (1)
  1. REMICADE [Suspect]
     Active Substance: INFLIXIMAB
     Indication: PSORIATIC ARTHROPATHY
     Dosage: ?          OTHER STRENGTH:100MG/VL;OTHER FREQUENCY:EVERY 6 WEEKS;?
     Route: 042
     Dates: start: 20190710

REACTIONS (3)
  - Pain [None]
  - Condition aggravated [None]
  - Pyrexia [None]
